FAERS Safety Report 17824828 (Version 2)
Quarter: 2020Q2

REPORT INFORMATION
  Report Type: Report from Study
  Country: US (occurrence: US)
  Receive Date: 20200526
  Receipt Date: 20200630
  Transmission Date: 20200714
  Serious: Yes (Hospitalization)
  Sender: FDA-Public Use
  Company Number: US-EISAI MEDICAL RESEARCH-EC-2020-074033

PATIENT
  Age: 78 Year
  Sex: Male

DRUGS (5)
  1. LENVIMA [Suspect]
     Active Substance: LENVATINIB
     Indication: RENAL CELL CARCINOMA
     Route: 048
     Dates: start: 20200428, end: 20200505
  2. LENVIMA [Suspect]
     Active Substance: LENVATINIB
     Dosage: ONCE A DAY FOR 2 WEEKS ON AND 1 WEEK OFF
     Route: 048
     Dates: start: 20200506, end: 202005
  3. PERCOCET [Concomitant]
     Active Substance: ACETAMINOPHEN\OXYCODONE HYDROCHLORIDE
  4. FENTANYL. [Concomitant]
     Active Substance: FENTANYL
  5. LENVIMA [Suspect]
     Active Substance: LENVATINIB
     Dosage: ONCE A DAY FOR 2 WEEKS ON AND 1 WEEK OFF
     Route: 048
     Dates: start: 202005

REACTIONS (9)
  - Fatigue [Recovering/Resolving]
  - Haemorrhoids [Unknown]
  - Peripheral swelling [Not Recovered/Not Resolved]
  - Decreased appetite [Recovering/Resolving]
  - Diarrhoea [Recovering/Resolving]
  - Confusional state [Unknown]
  - Blood pressure increased [Not Recovered/Not Resolved]
  - Stomatitis [Not Recovered/Not Resolved]
  - Dehydration [Recovered/Resolved]

NARRATIVE: CASE EVENT DATE: 2020
